FAERS Safety Report 5858143-1 (Version None)
Quarter: 2008Q3

REPORT INFORMATION
  Report Type: 
  Country: None (occurrence: None)
  Receive Date: 20080826
  Receipt Date: 20080822
  Transmission Date: 20090109
  Serious: Yes (Hospitalization)
  Sender: FDA-Public Use
  Company Number: A0688714A

PATIENT
  Age: 45 Year
  Sex: Male
  Weight: 109.1 kg

DRUGS (9)
  1. AVANDIA [Suspect]
     Dosage: 4MG TWICE PER DAY
     Route: 048
     Dates: start: 20050510, end: 20050823
  2. AVANDAMET [Suspect]
     Route: 048
     Dates: start: 20041026, end: 20070611
  3. METFORMIN HCL [Concomitant]
     Dates: start: 20031224
  4. AMARYL [Concomitant]
     Dates: start: 20031104
  5. TOPROL-XL [Concomitant]
     Dates: start: 20030819, end: 20060801
  6. POTASSIUM CHLORIDE [Concomitant]
  7. TEMAZEPAM [Concomitant]
  8. GABITRIL [Concomitant]
  9. LEVOTHYROXINE [Concomitant]

REACTIONS (3)
  - CARDIAC DISORDER [None]
  - MYOCARDIAL INFARCTION [None]
  - RENAL IMPAIRMENT [None]
